FAERS Safety Report 9278342 (Version 1)
Quarter: 2013Q2

REPORT INFORMATION
  Report Type: Spontaneous
  Country: CO (occurrence: CO)
  Receive Date: 20130508
  Receipt Date: 20130508
  Transmission Date: 20140414
  Serious: Yes (Other)
  Sender: FDA-Public Use
  Company Number: CO-UCBSA-085201

PATIENT
  Age: 75 Year
  Sex: Female

DRUGS (5)
  1. CIMZIA [Suspect]
     Indication: RHEUMATOID ARTHRITIS
     Route: 058
     Dates: start: 20130109
  2. IBUPROFEN [Concomitant]
     Dosage: DOSE: 1 TABLET/8 HOURS
  3. ACETAMINOPHEN [Concomitant]
     Dosage: DOSE: 500 MG/8 HOURS
  4. TRIPTIC [Concomitant]
     Dosage: 1 TABLET/12 HOURS
  5. CALCIUM [Concomitant]
     Dosage: DOSE: 1 TAB/24 HOURS

REACTIONS (2)
  - Rash generalised [Recovering/Resolving]
  - Pruritus generalised [Recovering/Resolving]
